FAERS Safety Report 10335229 (Version 1)
Quarter: 2014Q3

REPORT INFORMATION
  Report Type: Spontaneous
  Country: US (occurrence: US)
  Receive Date: 20140723
  Receipt Date: 20140723
  Transmission Date: 20150326
  Serious: No
  Sender: FDA-Public Use
  Company Number: US-ABBVIE-13P-163-1122906-00

PATIENT
  Sex: Female
  Weight: 81.72 kg

DRUGS (2)
  1. SYNTHROID [Suspect]
     Active Substance: LEVOTHYROXINE SODIUM
     Indication: HYPOTHYROIDISM
     Route: 048
     Dates: start: 1985
  2. SYNTHEROID [Suspect]
     Active Substance: DIETARY SUPPLEMENT
     Indication: PRODUCT USED FOR UNKNOWN INDICATION
     Dates: start: 201303

REACTIONS (6)
  - Alopecia [Not Recovered/Not Resolved]
  - Wrong drug administered [Unknown]
  - Swelling face [Not Recovered/Not Resolved]
  - Dyspnoea [Not Recovered/Not Resolved]
  - Breast pain [Recovered/Resolved]
  - Libido increased [Recovered/Resolved]

NARRATIVE: CASE EVENT DATE: 2006
